FAERS Safety Report 22527363 (Version 2)
Quarter: 2025Q1

REPORT INFORMATION
  Report Type: Spontaneous
  Country: US (occurrence: US)
  Receive Date: 20230606
  Receipt Date: 20250214
  Transmission Date: 20250408
  Serious: Yes (Other)
  Sender: MERCK SHARP & DOHME LLC
  Company Number: US-009507513-2305USA008362

PATIENT
  Age: 67 Year

DRUGS (3)
  1. KEYTRUDA [Suspect]
     Active Substance: PEMBROLIZUMAB
     Indication: Non-small cell lung cancer stage IV
     Dates: start: 201912, end: 202404
  2. ALIMTA [Concomitant]
     Active Substance: PEMETREXED DISODIUM
  3. CARBOPLATIN [Concomitant]
     Active Substance: CARBOPLATIN

REACTIONS (6)
  - Colitis [Unknown]
  - Malignant neoplasm progression [Unknown]
  - Product use issue [Unknown]
  - Toxicity to various agents [Unknown]
  - Liver function test decreased [Unknown]
  - Radiotherapy [Unknown]

NARRATIVE: CASE EVENT DATE: 20191201
